FAERS Safety Report 5668746-5 (Version None)
Quarter: 2008Q1

REPORT INFORMATION
  Report Type: 
  Country: None (occurrence: None)
  Receive Date: 20080312
  Receipt Date: 20080312
  Transmission Date: 20080703
  Serious: No
  Sender: FDA-Public Use
  Company Number: None

PATIENT
  Sex: Female

DRUGS (1)
  1. XYLOCAINE W/ EPINEPHRENE [Suspect]
     Indication: ANAESTHESIA
     Dates: start: 20080307, end: 20080307

REACTIONS (1)
  - ANAESTHETIC COMPLICATION [None]
